FAERS Safety Report 14269595 (Version 1)
Quarter: 2017Q4

REPORT INFORMATION
  Report Type: Spontaneous
  Country: AT (occurrence: AT)
  Receive Date: 20171211
  Receipt Date: 20171211
  Transmission Date: 20180321
  Serious: Yes (Other)
  Sender: FDA-Public Use
  Company Number: AT-OTSUKA-16300758

PATIENT
  Age: 64 Year
  Sex: Male

DRUGS (2)
  1. ABILIFY [Suspect]
     Active Substance: ARIPIPRAZOLE
     Indication: SCHIZOPHRENIA
     Dosage: STARTED WITH 5MG + UPTITRATED TO 30MG,LATER WITHDRAWN
  2. LEPONEX [Concomitant]
     Active Substance: CLOZAPINE
     Dosage: 25 MG, UNK

REACTIONS (2)
  - Delirium [Unknown]
  - Aggression [Unknown]
